FAERS Safety Report 10483139 (Version 3)
Quarter: 2014Q4

REPORT INFORMATION
  Report Type: Spontaneous
  Country: JP (occurrence: JP)
  Receive Date: 20140930
  Receipt Date: 20141020
  Transmission Date: 20150528
  Serious: Yes (Life-Threatening)
  Sender: FDA-Public Use
  Company Number: JP-ROCHE-1307590

PATIENT
  Age: 69 Year
  Sex: Female
  Weight: 39 kg

DRUGS (12)
  1. TAXOL [Concomitant]
     Active Substance: PACLITAXEL
     Indication: BREAST CANCER
     Dosage: DOSAGE IS UNCERTAIN.
     Route: 041
     Dates: start: 20131008, end: 20131112
  2. FML [Concomitant]
     Active Substance: FLUOROMETHOLONE
     Dosage: DOSAGE IS UNCERTAIN.
     Route: 065
  3. TEARBALANCE [Concomitant]
     Active Substance: HYALURONATE SODIUM
     Dosage: DOSAGE IS UNCERTAIN.
     Route: 065
  4. DOXORUBICIN HYDROCHLORIDE. [Concomitant]
     Active Substance: DOXORUBICIN HYDROCHLORIDE
     Indication: BREAST CANCER
     Route: 041
     Dates: start: 20140107, end: 20140311
  5. LUMIGAN [Concomitant]
     Active Substance: BIMATOPROST
     Dosage: DOSAGE IS UNCERTAIN.
     Route: 047
  6. ALPHAGAN P [Concomitant]
     Active Substance: BRIMONIDINE TARTRATE
     Dosage: DOSAGE IS UNCERTAIN.
     Route: 065
  7. HERCEPTIN [Suspect]
     Active Substance: TRASTUZUMAB
     Indication: BREAST CANCER
     Dosage: DOSAGE IS UNCERTAIN.
     Route: 041
     Dates: start: 20131015, end: 20131210
  8. HERCEPTIN [Suspect]
     Active Substance: TRASTUZUMAB
     Dosage: DOSAGE IS UNCERTAIN.
     Route: 041
     Dates: start: 20140527, end: 20140527
  9. HERCEPTIN [Suspect]
     Active Substance: TRASTUZUMAB
     Indication: BREAST CANCER
     Dosage: DOSAGE IS UNCERTAIN.
     Route: 041
     Dates: start: 20131009, end: 20131009
  10. HERCEPTIN [Suspect]
     Active Substance: TRASTUZUMAB
     Dosage: DOSAGE IS UNCERTAIN.
     Route: 041
     Dates: start: 20140617, end: 20140919
  11. COSOPT [Concomitant]
     Active Substance: DORZOLAMIDE HYDROCHLORIDE\TIMOLOL MALEATE
     Dosage: DOSAGE IS UNCERTAIN.
     Route: 065
  12. TARIVID [Concomitant]
     Active Substance: OFLOXACIN
     Dosage: DOSAGE IS UNCERTAIN.
     Route: 047

REACTIONS (5)
  - Cardiac failure [Recovered/Resolved]
  - Visual impairment [Not Recovered/Not Resolved]
  - Keratitis [Not Recovered/Not Resolved]
  - Lacrimation increased [Not Recovered/Not Resolved]
  - Cardiac arrest [Recovered/Resolved]

NARRATIVE: CASE EVENT DATE: 20131112
